FAERS Safety Report 9970896 (Version 2)
Quarter: 2014Q1

REPORT INFORMATION
  Report Type: Report from Study
  Country: US (occurrence: US)
  Receive Date: 20140306
  Receipt Date: 20140306
  Transmission Date: 20141002
  Serious: No
  Sender: FDA-Public Use
  Company Number: US-ABBVIE-13P-163-1140407-00

PATIENT
  Age: 56 Year
  Sex: Female

DRUGS (14)
  1. HUMIRA [Suspect]
     Indication: CROHN^S DISEASE
     Dates: start: 20130724, end: 20130821
  2. PIOGLITAZONE [Concomitant]
     Indication: DIABETES MELLITUS
     Route: 048
  3. METFORMIN [Concomitant]
     Indication: DIABETES MELLITUS
     Route: 048
  4. LANTUS [Concomitant]
     Indication: DIABETES MELLITUS
     Dosage: IN THE AM
  5. GLYBURIDE [Concomitant]
     Indication: DIABETES MELLITUS
     Route: 048
  6. CRESTOR [Concomitant]
     Indication: HYPERLIPIDAEMIA
     Route: 048
  7. LIALDA [Concomitant]
     Indication: CROHN^S DISEASE
     Route: 048
  8. PROAIR [Concomitant]
     Indication: ASTHMA
     Route: 055
  9. ADVAIR [Concomitant]
     Indication: ASTHMA
     Route: 055
  10. AMLODIPINE BESYLATE [Concomitant]
     Indication: HYPERTENSION
     Route: 048
  11. VALSARTAN + HIDROCLOROTIAZIDA GENFAR [Concomitant]
     Indication: PRODUCT USED FOR UNKNOWN INDICATION
     Dosage: 320 MG/12.5 MG ONCE DAILY
  12. DORZOLAMIDE [Concomitant]
     Indication: GLAUCOMA
     Dosage: 10 MG DROPS IN BOTH EYES
  13. LATANOPROST [Concomitant]
     Indication: GLAUCOMA
     Dosage: EYE DROPS
  14. AZATHIOPRINE [Concomitant]
     Indication: ARTHRALGIA
     Route: 048

REACTIONS (2)
  - Pneumonia [Not Recovered/Not Resolved]
  - Bronchitis [Not Recovered/Not Resolved]
